FAERS Safety Report 7726128-6 (Version None)
Quarter: 2011Q3

REPORT INFORMATION
  Report Type: 
  Country: None (occurrence: None)
  Receive Date: 20110902
  Receipt Date: 20110825
  Transmission Date: 20111222
  Serious: Yes (Hospitalization)
  Sender: FDA-Public Use
  Company Number: PHHY2011GB76027

PATIENT
  Age: 63 Year
  Sex: Male
  Weight: 70 kg

DRUGS (6)
  1. LANSOPRAZOLE [Concomitant]
     Dosage: 30 MG, UNK
  2. ACETAMINOPHEN [Concomitant]
     Dosage: 2 DF, QID
  3. RAMIPRIL [Concomitant]
     Dosage: 5 MG, QD
  4. ATORVASTATIN [Concomitant]
     Dosage: 10 MG, BID
  5. FLOXACILLIN SODIUM [Concomitant]
     Dosage: 500 MG, QID
  6. ALENDRONIC ACID [Suspect]
     Indication: OSTEOPOROSIS
     Dosage: 70 MG, QW
     Route: 048
     Dates: start: 20110704, end: 20110704

REACTIONS (3)
  - DUODENAL ULCER PERFORATION [None]
  - ABDOMINAL PAIN [None]
  - HELICOBACTER TEST POSITIVE [None]
